FAERS Safety Report 14945186 (Version 1)
Quarter: 2018Q2

REPORT INFORMATION
  Report Type: Spontaneous
  Country: JP (occurrence: JP)
  Receive Date: 20180529
  Receipt Date: 20180529
  Transmission Date: 20180711
  Serious: Yes (Hospitalization)
  Sender: FDA-Public Use
  Company Number: JP-LEO PHARMA-309099

PATIENT
  Sex: Male

DRUGS (1)
  1. DAIVONEX OINTMENT [Suspect]
     Active Substance: CALCIPOTRIENE
     Indication: LEUKODERMA
     Route: 061

REACTIONS (2)
  - Product use in unapproved indication [Unknown]
  - Hepatic function abnormal [Recovered/Resolved]
